FAERS Safety Report 7495956-7 (Version None)
Quarter: 2011Q2

REPORT INFORMATION
  Report Type: 
  Country: None (occurrence: None)
  Receive Date: 20110523
  Receipt Date: 20110519
  Transmission Date: 20111010
  Serious: Yes (Other)
  Sender: FDA-Public Use
  Company Number: US-PFIZER INC-2011108623

PATIENT
  Sex: Male
  Weight: 102.5 kg

DRUGS (3)
  1. ZYPREXA [Suspect]
     Indication: AFFECTIVE DISORDER
     Dosage: 10 MG, 1X/DAY
     Route: 048
     Dates: start: 20110426, end: 20110510
  2. GEODON [Suspect]
     Indication: AFFECTIVE DISORDER
     Dosage: 80 MG, 1X/DAY
     Route: 048
     Dates: start: 20110509, end: 20110511
  3. FLUVOXAMINE MALEATE [Suspect]
     Indication: AFFECTIVE DISORDER
     Dosage: 100 MG, 1X/DAY
     Route: 048
     Dates: start: 20110426, end: 20110510

REACTIONS (1)
  - ANAPHYLACTIC REACTION [None]
